FAERS Safety Report 19934158 (Version 2)
Quarter: 2021Q4

REPORT INFORMATION
  Report Type: Report from Study
  Country: DE (occurrence: DE)
  Receive Date: 20211008
  Receipt Date: 20211201
  Transmission Date: 20220303
  Serious: Yes (Other)
  Sender: FDA-Public Use
  Company Number: DE-MEDAC-OVA20210384

PATIENT
  Age: 7 Decade
  Sex: Female
  Weight: 67 kg

DRUGS (3)
  1. GEMCITABINE [Suspect]
     Active Substance: GEMCITABINE
     Indication: Ovarian cancer
     Dosage: 1348 MILLIGRAM, DAY 1 AND DAY 29
     Route: 065
     Dates: start: 20180306, end: 20180718
  2. TREOSULFAN [Suspect]
     Active Substance: TREOSULFAN
     Indication: Ovarian cancer
     Dosage: 5000 MILLIGRAM/SQ. METER (LAST DOSE PRIOR TO SAE ON 06-JUN-2018.)
     Route: 041
     Dates: start: 20180306
  3. TREOSULFAN [Suspect]
     Active Substance: TREOSULFAN
     Dosage: 8205 MILLIGRAM, CYCLE, LAST DOSE PRIOR TO SAE ON 06-JUN-2018.
     Route: 041
     Dates: start: 20180306, end: 20180905

REACTIONS (2)
  - Leukopenia [Recovered/Resolved]
  - White blood cell count decreased [Recovered/Resolved]

NARRATIVE: CASE EVENT DATE: 20180613
